FAERS Safety Report 5545434-7 (Version None)
Quarter: 2007Q4

REPORT INFORMATION
  Report Type: 
  Country: None (occurrence: None)
  Receive Date: 20071206
  Receipt Date: 20071206
  Transmission Date: 20080405
  Serious: No
  Sender: FDA-Public Use
  Company Number: None

PATIENT

DRUGS (2)
  1. FENTANYL [Suspect]
     Dosage: PATCH
  2. FENTANYL [Suspect]
     Dosage: PATCH

REACTIONS (4)
  - DYSPNOEA [None]
  - MEDICATION ERROR [None]
  - PULMONARY CONGESTION [None]
  - RESPIRATORY ARREST [None]
